FAERS Safety Report 4286649-8 (Version None)
Quarter: 2004Q1

REPORT INFORMATION
  Report Type: 
  Country: None (occurrence: None)
  Receive Date: 20040204
  Receipt Date: 20040120
  Transmission Date: 20041129
  Serious: Yes (Other)
  Sender: FDA-Public Use
  Company Number: US-JNJFOC-20040103821

PATIENT
  Age: 65 Year
  Sex: Male
  Weight: 85.2762 kg

DRUGS (13)
  1. NATRECOR [Suspect]
     Indication: CARDIAC FAILURE CONGESTIVE
     Dosage: SEE IMAGE
     Route: 042
     Dates: start: 20030612, end: 20030701
  2. NATRECOR [Suspect]
     Indication: CARDIAC FAILURE CONGESTIVE
     Dosage: SEE IMAGE
     Route: 042
     Dates: start: 20030612, end: 20030701
  3. NATRECOR [Suspect]
     Indication: CARDIAC FAILURE CONGESTIVE
     Dosage: SEE IMAGE
     Route: 042
     Dates: start: 20030801
  4. NATRECOR [Suspect]
     Indication: CARDIAC FAILURE CONGESTIVE
     Dosage: SEE IMAGE
     Route: 042
     Dates: start: 20030801
  5. NATRECOR [Suspect]
     Indication: CARDIAC FAILURE CONGESTIVE
     Dosage: SEE IMAGE
     Route: 042
     Dates: start: 20031211
  6. NATRECOR [Suspect]
     Indication: CARDIAC FAILURE CONGESTIVE
     Dosage: SEE IMAGE
     Route: 042
     Dates: start: 20031211
  7. BUMEX [Concomitant]
  8. LISINOPRIL [Concomitant]
  9. LIPITOR [Concomitant]
  10. COREG [Concomitant]
  11. LEVOXYL [Concomitant]
  12. GLIPIZIDE [Concomitant]
  13. ASPIRIN [Concomitant]

REACTIONS (9)
  - HAEMATOCRIT DECREASED [None]
  - HAEMATURIA [None]
  - HAEMOPTYSIS [None]
  - HYPERCAPNIA [None]
  - OPERATIVE HAEMORRHAGE [None]
  - PLATELET COUNT DECREASED [None]
  - PROCEDURAL SITE REACTION [None]
  - RESPIRATORY ARREST [None]
  - RETROPERITONEAL HAEMORRHAGE [None]
